FAERS Safety Report 4674769-5 (Version None)
Quarter: 2005Q2

REPORT INFORMATION
  Report Type: 
  Country: None (occurrence: None)
  Receive Date: 20050526
  Receipt Date: 20050512
  Transmission Date: 20051028
  Serious: Yes (Hospitalization, Disabling)
  Sender: FDA-Public Use
  Company Number: 2005AP02864

PATIENT
  Age: 33 Year
  Sex: Male
  Weight: 65 kg

DRUGS (3)
  1. SENSORCAINE [Suspect]
     Route: 008
     Dates: start: 20050418
  2. LIGNOCAINE WITH ADRENALINE [Suspect]
     Route: 008
     Dates: start: 20050418
  3. DIAZEPAM [Concomitant]

REACTIONS (3)
  - MOTOR DYSFUNCTION [None]
  - SENSORY DISTURBANCE [None]
  - URINARY INCONTINENCE [None]
